FAERS Safety Report 7473083-2 (Version None)
Quarter: 2011Q2

REPORT INFORMATION
  Report Type: 
  Country: None (occurrence: None)
  Receive Date: 20110511
  Receipt Date: 20110503
  Transmission Date: 20111010
  Serious: Yes (Other)
  Sender: FDA-Public Use
  Company Number: US-ROCHE-775452

PATIENT
  Sex: Female
  Weight: 44.5 kg

DRUGS (3)
  1. MESTINON [Concomitant]
  2. CELLCEPT [Suspect]
     Indication: MYASTHENIA GRAVIS
     Route: 048
  3. CELLCEPT [Suspect]
     Route: 048

REACTIONS (3)
  - DISEASE PROGRESSION [None]
  - DYSPHAGIA [None]
  - PRODUCT TASTE ABNORMAL [None]
